FAERS Safety Report 5890550-3 (Version None)
Quarter: 2008Q3

REPORT INFORMATION
  Report Type: 
  Country: None (occurrence: None)
  Receive Date: 20080922
  Receipt Date: 20080911
  Transmission Date: 20090109
  Serious: Yes (Other)
  Sender: FDA-Public Use
  Company Number: GB-JNJFOC-20080606809

PATIENT
  Sex: Female
  Weight: 84 kg

DRUGS (7)
  1. REMICADE [Suspect]
     Indication: RHEUMATOID ARTHRITIS
     Route: 042
  2. NORGESTIMATE AND ETHINYL ESTRADIOL [Concomitant]
  3. METHOTREXATE [Concomitant]
  4. PREDNISOLONE [Concomitant]
  5. CALCIUM GLUCONATE [Concomitant]
  6. COD LIVER OIL [Concomitant]
  7. CO-DYDRAMOL [Concomitant]

REACTIONS (1)
  - MALIGNANT MELANOMA [None]
